FAERS Safety Report 18513421 (Version 2)
Quarter: 2022Q1

REPORT INFORMATION
  Report Type: Report from Study
  Country: US (occurrence: None)
  Receive Date: 20201118
  Receipt Date: 20220221
  Transmission Date: 20220423
  Serious: Yes (Other)
  Sender: FDA-Public Use
  Company Number: US-MERCK HEALTHCARE KGAA-9197961

PATIENT
  Sex: Female
  Weight: 39 kg

DRUGS (1)
  1. REBIF [Suspect]
     Active Substance: INTERFERON BETA-1A
     Indication: Multiple sclerosis
     Route: 058
     Dates: start: 20140619, end: 20220209

REACTIONS (9)
  - Hypothalamo-pituitary disorder [Unknown]
  - Fall [Not Recovered/Not Resolved]
  - Arthritis [Unknown]
  - Anxiety [Unknown]
  - Fear of injection [Recovering/Resolving]
  - Grip strength decreased [Not Recovered/Not Resolved]
  - Economic problem [Unknown]
  - Wrong schedule [Unknown]
  - Product dose omission issue [Unknown]
